FAERS Safety Report 5893567-8 (Version None)
Quarter: 2008Q3

REPORT INFORMATION
  Report Type: 
  Country: None (occurrence: None)
  Receive Date: 20080919
  Receipt Date: 20080918
  Transmission Date: 20090109
  Serious: Yes (Hospitalization)
  Sender: FDA-Public Use
  Company Number: 2008SP011894

PATIENT
  Age: 68 Year
  Sex: Female
  Weight: 53 kg

DRUGS (2)
  1. PEG-INTRON [Suspect]
     Indication: MALIGNANT MELANOMA
     Dosage: 3 MCG/KG;, 6 MCG/KG;, 2 MCG/KG;
     Dates: start: 20020314, end: 20020508
  2. PEG-INTRON [Suspect]
     Indication: MALIGNANT MELANOMA
     Dosage: 3 MCG/KG;, 6 MCG/KG;, 2 MCG/KG;
     Dates: start: 20011204

REACTIONS (4)
  - LUNG NEOPLASM [None]
  - METASTASES TO LUNG [None]
  - NEUTROPHIL PERCENTAGE DECREASED [None]
  - WHITE BLOOD CELL COUNT DECREASED [None]
